FAERS Safety Report 5174434-4 (Version None)
Quarter: 2006Q4

REPORT INFORMATION
  Report Type: 
  Country: None (occurrence: None)
  Receive Date: 20061206
  Receipt Date: 20061121
  Transmission Date: 20070319
  Serious: No
  Sender: FDA-Public Use
  Company Number: 2006-150933-NL

PATIENT
  Sex: Female

DRUGS (1)
  1. ETONOGESTREL [Suspect]
     Indication: CONTRACEPTION
     Dosage: DF
     Dates: start: 20030101, end: 20040101

REACTIONS (6)
  - CONVERSION DISORDER [None]
  - GENITAL HAEMORRHAGE [None]
  - IATROGENIC INJURY [None]
  - MEDIAN NERVE LESION [None]
  - SENSORIMOTOR DISORDER [None]
  - WEIGHT INCREASED [None]
